FAERS Safety Report 7432335-2 (Version None)
Quarter: 2011Q2

REPORT INFORMATION
  Report Type: 
  Country: None (occurrence: None)
  Receive Date: 20110422
  Receipt Date: 20110419
  Transmission Date: 20111010
  Serious: Yes (Hospitalization)
  Sender: FDA-Public Use
  Company Number: DE-PFIZER INC-2011086282

PATIENT
  Age: 74 Year
  Sex: Female
  Weight: 73 kg

DRUGS (12)
  1. PRADAXA [Interacting]
     Indication: THROMBOSIS PROPHYLAXIS
     Dosage: 110 MG, 1X/DAY
     Route: 048
     Dates: start: 20100120, end: 20100120
  2. BERLOSIN [Concomitant]
     Indication: PAIN
     Dosage: 3 G, 1X/DAY
     Route: 042
     Dates: start: 20100120, end: 20100120
  3. DORMO-PUREN [Concomitant]
     Indication: INSOMNIA
     Dosage: UNK
     Route: 048
     Dates: start: 20100121, end: 20100121
  4. TRAMAL [Concomitant]
     Indication: PAIN
     Dosage: UNK
     Route: 048
     Dates: start: 20100121, end: 20100121
  5. ARCOXIA [Concomitant]
     Indication: PAIN
     Dosage: 90 MG, 1X/DAY
     Route: 048
     Dates: start: 20100120, end: 20100123
  6. PRADAXA [Interacting]
     Dosage: 220 MG, 1X/DAY
     Route: 048
     Dates: start: 20100121, end: 20100122
  7. OMEPRAZOLE [Interacting]
     Indication: PROPHYLAXIS AGAINST GASTROINTESTINAL ULCER
     Dosage: 40 MG, 1X/DAY
     Route: 048
     Dates: end: 20100203
  8. ZOFRAN [Concomitant]
     Indication: PROCEDURAL NAUSEA
     Dosage: 2 DF, 1X/DAY
     Route: 042
     Dates: start: 20100120, end: 20100120
  9. VOMEX A [Concomitant]
     Indication: PROCEDURAL NAUSEA
     Dosage: 1 DF, 1X/DAY
     Route: 042
     Dates: start: 20100120, end: 20100120
  10. PANTOPRAZOLE [Suspect]
     Indication: PROPHYLAXIS AGAINST GASTROINTESTINAL ULCER
     Dosage: 40 MG, 1X/DAY
     Route: 048
     Dates: start: 20100123, end: 20100125
  11. PANTOZOL [Interacting]
     Indication: PROPHYLAXIS AGAINST GASTROINTESTINAL ULCER
     Dosage: 40 MG, 1X/DAY
     Route: 042
     Dates: start: 20100120, end: 20100120
  12. DIPIDOLOR [Concomitant]
     Indication: PAIN
     Dosage: 7.5 MG, 1X/DAY
     Route: 058
     Dates: start: 20100120, end: 20100120

REACTIONS (2)
  - PULMONARY EMBOLISM [None]
  - DRUG INTERACTION [None]
